FAERS Safety Report 8937158 (Version 1)
Quarter: 2012Q4

REPORT INFORMATION
  Report Type: Spontaneous
  Country: US (occurrence: None)
  Receive Date: 20121128
  Receipt Date: 20121128
  Transmission Date: 20130627
  Serious: Yes (Hospitalization)
  Sender: FDA-Public Use
  Company Number: None

PATIENT
  Age: 69 Year
  Sex: Female
  Weight: 85 kg

DRUGS (6)
  1. PLAVIX [Suspect]
     Indication: CORONARY ARTERY DISEASE
     Dosage: CHRONIC
75MG DAILY PO
     Route: 048
  2. ASA [Suspect]
     Indication: CORONARY ARTERY DISEASE
     Dosage: CHRONIC
325MG DAILY PO
     Route: 048
  3. ZOCOR [Concomitant]
  4. TOPROL XL [Concomitant]
  5. CLARITIN [Concomitant]
  6. SYNTHROID [Concomitant]

REACTIONS (4)
  - Abdominal pain [None]
  - Haematemesis [None]
  - Upper gastrointestinal haemorrhage [None]
  - Oesophagitis ulcerative [None]
